FAERS Safety Report 11057375 (Version 1)
Quarter: 2015Q2

REPORT INFORMATION
  Report Type: Spontaneous
  Country: AU (occurrence: AU)
  Receive Date: 20150422
  Receipt Date: 20150422
  Transmission Date: 20150821
  Serious: Yes (Other)
  Sender: FDA-Public Use
  Company Number: AU-SA-2015SA048448

PATIENT

DRUGS (1)
  1. PLERIXAFOR [Suspect]
     Active Substance: PLERIXAFOR
     Route: 065

REACTIONS (1)
  - Anaphylactoid reaction [Recovered/Resolved]
